FAERS Safety Report 8925212 (Version 2)
Quarter: 2013Q1

REPORT INFORMATION
  Report Type: Spontaneous
  Country: GB (occurrence: None)
  Receive Date: 20121116
  Receipt Date: 20130325
  Transmission Date: 20140127
  Serious: Yes (Death, Hospitalization)
  Sender: FDA-Public Use
  Company Number: GER/UKI/12/0026605

PATIENT
  Age: 70 Year
  Sex: Female
  Weight: 82.6 kg

DRUGS (3)
  1. RISPERIDONE (RISPERIDONE) [Suspect]
     Indication: DEMENTIA
  2. MIRTAZAPINE (MIRTAZAPINE) [Suspect]
     Indication: PRODUCT USED FOR UNKNOWN INDICATION
  3. DIAZEPAM (DIAZEPAM) [Suspect]
     Indication: PRODUCT USED FOR UNKNOWN INDICATION

REACTIONS (8)
  - Neuroleptic malignant syndrome [None]
  - Coma [None]
  - Dehydration [None]
  - Urinary tract infection [None]
  - Cholecystitis [None]
  - Hypophagia [None]
  - Bedridden [None]
  - Catatonia [None]
